FAERS Safety Report 4815859-3 (Version None)
Quarter: 2005Q4

REPORT INFORMATION
  Report Type: 
  Country: None (occurrence: None)
  Receive Date: 20051031
  Receipt Date: 20050803
  Transmission Date: 20060501
  Serious: Yes (Hospitalization)
  Sender: FDA-Public Use
  Company Number: CA-MERCK-0508CAN00039

PATIENT
  Age: 50 Year
  Sex: Female
  Weight: 73 kg

DRUGS (5)
  1. VIOXX [Suspect]
     Indication: BACK PAIN
     Route: 048
     Dates: start: 20000601, end: 20020101
  2. VIOXX [Suspect]
     Route: 048
     Dates: start: 20020101, end: 20020101
  3. VIOXX [Suspect]
     Route: 048
     Dates: start: 20020101, end: 20031001
  4. OMEPRAZOLE MAGNESIUM [Concomitant]
     Indication: GASTRIC DISORDER
     Route: 065
  5. TRIAZOLAM [Concomitant]
     Indication: SLEEP DISORDER
     Route: 065

REACTIONS (14)
  - ANXIETY [None]
  - APNOEA [None]
  - BLOOD PRESSURE INCREASED [None]
  - CARDIAC FAILURE CONGESTIVE [None]
  - COMA [None]
  - DIARRHOEA [None]
  - DYSPNOEA [None]
  - EPISTAXIS [None]
  - INJURY [None]
  - MENINGITIS [None]
  - MYOCARDIAL INFARCTION [None]
  - OEDEMA [None]
  - ORGAN FAILURE [None]
  - PALPITATIONS [None]
